FAERS Safety Report 23701204 (Version 3)
Quarter: 2025Q2

REPORT INFORMATION
  Report Type: Report from Study
  Country: BR (occurrence: BR)
  Receive Date: 20240403
  Receipt Date: 20250603
  Transmission Date: 20250717
  Serious: Yes (Other)
  Sender: TAKEDA
  Company Number: BR-TAKEDA-2024TUS009560

PATIENT
  Age: 44 Year
  Sex: Female

DRUGS (4)
  1. VEDOLIZUMAB [Suspect]
     Active Substance: VEDOLIZUMAB
     Indication: Crohn^s disease
  2. AZULFIDINE [Concomitant]
     Active Substance: SULFASALAZINE
  3. PREDNISONE [Concomitant]
     Active Substance: PREDNISONE
  4. Corament [Concomitant]

REACTIONS (6)
  - Crohn^s disease [Recovered/Resolved]
  - Gastrointestinal carcinoma [Unknown]
  - COVID-19 [Recovered/Resolved]
  - Dengue fever [Recovered/Resolved]
  - Product availability issue [Unknown]
  - Inappropriate schedule of product administration [Unknown]

NARRATIVE: CASE EVENT DATE: 20231201
